FAERS Safety Report 6239297-4 (Version None)
Quarter: 2009Q2

REPORT INFORMATION
  Report Type: 
  Country: None (occurrence: None)
  Receive Date: 20090618
  Receipt Date: 20090618
  Transmission Date: 20091009
  Serious: Yes (Other)
  Sender: FDA-Public Use
  Company Number: None

PATIENT
  Age: 50 Year
  Sex: Female
  Weight: 62.5964 kg

DRUGS (2)
  1. ZICAM COLD REMEDY MATRIXX [Suspect]
     Indication: NASAL CONGESTION
     Dosage: 1 SQUIRT EACH NOSTRIL EVERY 6-8 HOURS NASAL
     Route: 045
     Dates: start: 20080613, end: 20080615
  2. ZICAM COLD REMEDY MATRIXX [Suspect]
     Indication: NASOPHARYNGITIS
     Dosage: 1 SQUIRT EACH NOSTRIL EVERY 6-8 HOURS NASAL
     Route: 045
     Dates: start: 20080613, end: 20080615

REACTIONS (3)
  - ANOSMIA [None]
  - DRUG INEFFECTIVE [None]
  - HYPOGEUSIA [None]
